FAERS Safety Report 9996083 (Version 2)
Quarter: 2014Q1

REPORT INFORMATION
  Report Type: Spontaneous
  Country: CN (occurrence: CN)
  Receive Date: 20140311
  Receipt Date: 20140313
  Transmission Date: 20141002
  Serious: Yes (Other)
  Sender: FDA-Public Use
  Company Number: CN-MERCK-1403CHN003305

PATIENT
  Age: 45 Year
  Sex: Male

DRUGS (3)
  1. PROSCAR [Suspect]
     Indication: BENIGN PROSTATIC HYPERPLASIA
     Dosage: 5 MG, QD
     Route: 048
     Dates: start: 201402
  2. OFLOXACIN [Concomitant]
     Indication: PROSTATITIS
     Dosage: UNK
     Route: 048
     Dates: start: 201402
  3. QIAN LI SHU TONG JIAO NANG [Concomitant]
     Indication: PROSTATITIS
     Dosage: UNK
     Route: 048
     Dates: start: 201402

REACTIONS (3)
  - Hearing impaired [Not Recovered/Not Resolved]
  - Memory impairment [Recovering/Resolving]
  - Slow response to stimuli [Not Recovered/Not Resolved]
